FAERS Safety Report 18242775 (Version 1)
Quarter: 2020Q3

REPORT INFORMATION
  Report Type: Spontaneous
  Country: CN (occurrence: CN)
  Receive Date: 20200908
  Receipt Date: 20200908
  Transmission Date: 20201103
  Serious: Yes (Other)
  Sender: FDA-Public Use
  Company Number: CN-PFIZER INC-2020344826

PATIENT
  Age: 27 Year
  Sex: Female
  Weight: 41.3 kg

DRUGS (2)
  1. CYCLOPHOSPHAMIDE. [Suspect]
     Active Substance: CYCLOPHOSPHAMIDE
     Indication: BREAST CANCER
     Dosage: 800 MG, CYCLIC
     Dates: start: 20200430, end: 20200430
  2. EPIRUBICIN HCL [Suspect]
     Active Substance: EPIRUBICIN HYDROCHLORIDE
     Indication: BREAST CANCER
     Dosage: 120 MG, 1X/DAY, CYCLIC
     Route: 041
     Dates: start: 20200430, end: 20200430

REACTIONS (4)
  - Vomiting [Recovered/Resolved]
  - Seizure [Recovered/Resolved]
  - Nausea [Recovered/Resolved]
  - Hypoaesthesia [Recovered/Resolved]

NARRATIVE: CASE EVENT DATE: 20200430
